FAERS Safety Report 9919736 (Version 1)
Quarter: 2014Q1

REPORT INFORMATION
  Report Type: Spontaneous
  Country: FR (occurrence: FR)
  Receive Date: 20140224
  Receipt Date: 20140224
  Transmission Date: 20141002
  Serious: Yes (Other)
  Sender: FDA-Public Use
  Company Number: PHHY2014FR021249

PATIENT
  Age: 55 Year
  Sex: Male

DRUGS (3)
  1. NEORAL [Suspect]
     Dosage: 100 MG, BID
     Route: 048
     Dates: start: 20120309, end: 20130221
  2. CELLCEPT [Suspect]
     Dosage: 3000 MG, QD
     Route: 048
     Dates: start: 20120309, end: 20130227
  3. SOLUPRED [Suspect]
     Dosage: 5 MG, QD
     Route: 048
     Dates: start: 20120309

REACTIONS (2)
  - Arthralgia [Unknown]
  - Osteonecrosis [Unknown]
